FAERS Safety Report 7762419-0 (Version None)
Quarter: 2011Q3

REPORT INFORMATION
  Report Type: 
  Country: None (occurrence: None)
  Receive Date: 20110920
  Receipt Date: 20110830
  Transmission Date: 20111222
  Serious: Yes (Hospitalization)
  Sender: FDA-Public Use
  Company Number: US-ROCHE-803188

PATIENT
  Sex: Female

DRUGS (1)
  1. PEGASYS [Suspect]
     Route: 065

REACTIONS (1)
  - HAEMORRHAGE [None]
